FAERS Safety Report 15497201 (Version 1)
Quarter: 2018Q4

REPORT INFORMATION
  Report Type: Spontaneous
  Country: US (occurrence: US)
  Receive Date: 20181013
  Receipt Date: 20181013
  Transmission Date: 20190205
  Serious: No
  Sender: FDA-Public Use
  Company Number: None

PATIENT
  Sex: Female
  Weight: 63 kg

DRUGS (10)
  1. SPRAYOLOGY: STRESS RELIEF [Suspect]
     Active Substance: HOMEOPATHICS
     Indication: HYPERSENSITIVITY
     Dates: start: 20160413, end: 20181011
  2. SPRAYOLOGY: STRESS RELIEF [Suspect]
     Active Substance: HOMEOPATHICS
     Indication: GASTRIC DISORDER
     Dates: start: 20160413, end: 20181011
  3. SPRAYOLOGY: STRESS RELIEF [Suspect]
     Active Substance: HOMEOPATHICS
     Indication: STRESS
     Dates: start: 20160413, end: 20181011
  4. SPRAYOLOGY: STRESS RELIEF [Suspect]
     Active Substance: HOMEOPATHICS
     Indication: PRODUCT USED FOR UNKNOWN INDICATION
     Dates: start: 20160413, end: 20181011
  5. SPRAYOLOGY DIGESTIVEEASE [Suspect]
     Active Substance: HOMEOPATHICS
  6. SPRAYOLOGY IMMUNOBOOSTER [Suspect]
     Active Substance: HOMEOPATHICS
  7. SPRAYOLOGY: STRESS RELIEF [Suspect]
     Active Substance: HOMEOPATHICS
     Indication: SLEEP DISORDER
     Dates: start: 20160413, end: 20181011
  8. SPRAYOLOGY: STRESS RELIEF [Suspect]
     Active Substance: HOMEOPATHICS
     Indication: IMMUNE SYSTEM DISORDER
     Dates: start: 20160413, end: 20181011
  9. SPRAYOLOGY SLEEPEASE [Suspect]
     Active Substance: HOMEOPATHICS
  10. SPRAYOLOGY ALLERGEASE [Suspect]
     Active Substance: HOMEOPATHICS

REACTIONS (2)
  - Abdominal pain upper [None]
  - Diarrhoea [None]
